FAERS Safety Report 10597552 (Version 1)
Quarter: 2014Q4

REPORT INFORMATION
  Report Type: Spontaneous
  Country: US (occurrence: None)
  Receive Date: 20141120
  Receipt Date: 20141120
  Transmission Date: 20150529
  Serious: Yes (Disabling, Other)
  Sender: FDA-Public Use
  Company Number: None

PATIENT
  Age: 74 Year
  Sex: Male
  Weight: 84.37 kg

DRUGS (2)
  1. CIPROFLOXACN [Suspect]
     Active Substance: CIPROFLOXACIN
     Indication: URINARY TRACT INFECTION
     Route: 048
     Dates: start: 20141022, end: 20141026
  2. CIPROFLOXACN [Suspect]
     Active Substance: CIPROFLOXACIN
     Indication: PROSTATE INFECTION
     Route: 048
     Dates: start: 20141022, end: 20141026

REACTIONS (7)
  - Joint stiffness [None]
  - Paraesthesia oral [None]
  - Lip pain [None]
  - Paraesthesia [None]
  - Arthralgia [None]
  - Dyspepsia [None]
  - Glossodynia [None]

NARRATIVE: CASE EVENT DATE: 20141025
